FAERS Safety Report 5130770-9 (Version None)
Quarter: 2006Q3

REPORT INFORMATION
  Report Type: 
  Country: None (occurrence: None)
  Receive Date: 20060829
  Receipt Date: 20060605
  Transmission Date: 20061208
  Serious: No
  Sender: FDA-Public Use
  Company Number: PHEH2006US07283

PATIENT
  Age: 5 Year
  Sex: Male

DRUGS (3)
  1. EXJADE [Suspect]
     Indication: THALASSAEMIA
     Dosage: 375 MG, QD, ORAL
     Route: 048
     Dates: start: 20060306
  2. FOLIC ACID [Concomitant]
  3. VITAMIN E [Concomitant]

REACTIONS (2)
  - BLOOD URINE PRESENT [None]
  - PROTEIN URINE PRESENT [None]
